FAERS Safety Report 10014782 (Version 2)
Quarter: 2014Q1

REPORT INFORMATION
  Report Type: Spontaneous
  Country: US (occurrence: US)
  Receive Date: 20140317
  Receipt Date: 20140317
  Transmission Date: 20141002
  Serious: Yes (Hospitalization, Other)
  Sender: FDA-Public Use
  Company Number: US-CELGENEUS-163-21880-14015387

PATIENT
  Age: 69 Year
  Sex: Female
  Weight: 85.35 kg

DRUGS (11)
  1. REVLIMID [Suspect]
     Indication: PLASMA CELL MYELOMA
     Dosage: 10 MILLIGRAM
     Route: 048
     Dates: start: 20131116, end: 201312
  2. DEXAMETHASONE [Concomitant]
     Indication: CHEMOTHERAPY
     Route: 065
  3. ACYCLOVIR [Concomitant]
     Indication: HERPES ZOSTER
     Route: 065
  4. ZOFRAN [Concomitant]
     Indication: NAUSEA
     Route: 065
  5. LIPITOR [Concomitant]
     Indication: HYPERLIPIDAEMIA
     Route: 065
  6. MAGNESIUM [Concomitant]
     Indication: VITAMIN SUPPLEMENTATION
     Route: 065
  7. ASPIRIN [Concomitant]
     Indication: CARDIOVASCULAR DISORDER
     Route: 065
  8. PLAVIX [Concomitant]
     Indication: CARDIOVASCULAR DISORDER
     Route: 065
  9. OXYCODONE [Concomitant]
     Indication: PAIN
     Route: 065
  10. PROZAC [Concomitant]
     Indication: ANXIETY
     Route: 065
  11. XANAX [Concomitant]
     Indication: ANXIETY
     Route: 065

REACTIONS (3)
  - Eating disorder [Unknown]
  - Haemoglobin decreased [Unknown]
  - Platelet count decreased [Unknown]
